FAERS Safety Report 25259889 (Version 1)
Quarter: 2025Q2

REPORT INFORMATION
  Report Type: Spontaneous
  Country: NO (occurrence: NO)
  Receive Date: 20250501
  Receipt Date: 20250501
  Transmission Date: 20250716
  Serious: Yes (Death, Other)
  Sender: ROCHE
  Company Number: NO-ROCHE-10000268144

PATIENT
  Age: 24 Year
  Sex: Female

DRUGS (8)
  1. POLATUZUMAB VEDOTIN [Suspect]
     Active Substance: POLATUZUMAB VEDOTIN
     Indication: B-cell lymphoma
     Route: 065
  2. CYCLOPHOSPHAMIDE [Suspect]
     Active Substance: CYCLOPHOSPHAMIDE
     Indication: B-cell lymphoma
     Route: 065
  3. OXALIPLATIN [Suspect]
     Active Substance: OXALIPLATIN
     Indication: B-cell lymphoma
     Route: 065
  4. ETOPOSIDE PHOSPHATE [Suspect]
     Active Substance: ETOPOSIDE PHOSPHATE
     Indication: B-cell lymphoma
     Route: 065
  5. PREDNISONE [Suspect]
     Active Substance: PREDNISONE
     Indication: B-cell lymphoma
     Route: 065
  6. VINCRISTINE SULFATE [Suspect]
     Active Substance: VINCRISTINE SULFATE
     Indication: B-cell lymphoma
     Route: 065
  7. DOXORUBICIN HYDROCHLORIDE [Suspect]
     Active Substance: DOXORUBICIN HYDROCHLORIDE
     Indication: B-cell lymphoma
     Route: 065
  8. GEMCITABINE [Suspect]
     Active Substance: GEMCITABINE
     Indication: B-cell lymphoma
     Route: 065

REACTIONS (14)
  - Off label use [Unknown]
  - Tumour lysis syndrome [Unknown]
  - Off label use [Unknown]
  - Abdominal pain [Unknown]
  - Blood uric acid increased [Unknown]
  - Blood creatinine increased [Unknown]
  - Blood phosphorus increased [Unknown]
  - General physical health deterioration [Unknown]
  - Nausea [Unknown]
  - Leukocytosis [Unknown]
  - C-reactive protein increased [Unknown]
  - Colitis [Unknown]
  - Drug ineffective [Unknown]
  - Thrombotic microangiopathy [Fatal]
